FAERS Safety Report 12244520 (Version 1)
Quarter: 2016Q2

REPORT INFORMATION
  Report Type: Spontaneous
  Country: US (occurrence: US)
  Receive Date: 20160407
  Receipt Date: 20160407
  Transmission Date: 20160815
  Serious: No
  Sender: FDA-Public Use
  Company Number: US-AMGEN-USASP2016041381

PATIENT
  Age: 56 Year
  Sex: Male

DRUGS (2)
  1. ENBREL [Suspect]
     Active Substance: ETANERCEPT
     Indication: PSORIATIC ARTHROPATHY
     Dosage: QWK
     Route: 058
  2. CHANTIX [Suspect]
     Active Substance: VARENICLINE TARTRATE
     Indication: SMOKING CESSATION THERAPY
     Dosage: UNK
     Route: 065

REACTIONS (8)
  - Pain [Unknown]
  - Headache [Unknown]
  - Depression [Unknown]
  - Drug ineffective [Unknown]
  - Mood altered [Unknown]
  - Sleep disorder [Unknown]
  - Aggression [Unknown]
  - Abnormal dreams [Unknown]
